FAERS Safety Report 8205543-0 (Version None)
Quarter: 2012Q1

REPORT INFORMATION
  Report Type: 
  Country: None (occurrence: None)
  Receive Date: 20120313
  Receipt Date: 20120228
  Transmission Date: 20120608
  Serious: Yes (Hospitalization)
  Sender: FDA-Public Use
  Company Number: US-ELI_LILLY_AND_COMPANY-US201203000291

PATIENT
  Age: 58 Year
  Sex: Female

DRUGS (5)
  1. LISINOPRIL [Concomitant]
     Indication: HYPERTENSION
     Dosage: 10 MG, UNK
     Dates: start: 20000101
  2. IBUPROFEN [Concomitant]
     Indication: SINUS HEADACHE
     Dosage: 200 MG, PRN
     Dates: start: 20000101
  3. RANITIDINE [Concomitant]
     Indication: GASTROOESOPHAGEAL REFLUX DISEASE
     Dosage: UNK, PRN
     Dates: start: 20110101
  4. PROZAC [Suspect]
     Indication: ANXIETY
     Dosage: 40 MG, QD
     Route: 048
     Dates: start: 20000101
  5. HYDROCHLOROTHIAZIDE [Concomitant]
     Indication: HYPERTENSION
     Dosage: 12.5 MG, UNK
     Dates: start: 20000101

REACTIONS (7)
  - TIBIA FRACTURE [None]
  - FALL [None]
  - DIZZINESS [None]
  - FIBULA FRACTURE [None]
  - OFF LABEL USE [None]
  - ANKLE FRACTURE [None]
  - HYPERTENSION [None]
